FAERS Safety Report 8037961-8 (Version None)
Quarter: 2012Q1

REPORT INFORMATION
  Report Type: 
  Country: None (occurrence: None)
  Receive Date: 20120111
  Receipt Date: 20120106
  Transmission Date: 20120608
  Serious: Yes (Other)
  Sender: FDA-Public Use
  Company Number: US-ASTRAZENECA-2011SE60351

PATIENT
  Age: 15 Year
  Sex: Male
  Weight: 71.7 kg

DRUGS (20)
  1. SEROQUEL [Suspect]
     Route: 048
     Dates: start: 20110411
  2. SEROQUEL [Suspect]
     Route: 048
     Dates: start: 20110411
  3. TRAZODONE HCL [Concomitant]
  4. SEROQUEL [Suspect]
     Route: 048
     Dates: start: 20110214
  5. ADDERALL 5 [Concomitant]
     Indication: ATTENTION DEFICIT/HYPERACTIVITY DISORDER
  6. LEXAPRO [Concomitant]
     Indication: DEPRESSION
  7. SEROQUEL [Suspect]
     Route: 048
     Dates: start: 20110117
  8. LEXAPRO [Concomitant]
     Indication: OBSESSIVE-COMPULSIVE DISORDER
  9. TRAZODONE HCL [Concomitant]
     Indication: SLEEP DISORDER
     Dates: end: 20101206
  10. SEROQUEL [Suspect]
     Indication: AGGRESSION
     Route: 048
     Dates: end: 20101206
  11. SEROQUEL [Suspect]
     Route: 048
     Dates: end: 20101206
  12. SEROQUEL [Suspect]
     Route: 048
     Dates: start: 20110117
  13. SEROQUEL [Suspect]
     Route: 048
     Dates: start: 20110630
  14. SEROQUEL [Suspect]
     Route: 048
     Dates: start: 20110509, end: 20110606
  15. SEROQUEL [Suspect]
     Route: 048
     Dates: start: 20110630
  16. SEROQUEL [Suspect]
     Route: 048
     Dates: end: 20111007
  17. SEROQUEL [Suspect]
     Route: 048
     Dates: start: 20110214
  18. SEROQUEL [Suspect]
     Route: 048
     Dates: start: 20110509, end: 20110606
  19. XOPENEX HFA [Concomitant]
     Indication: ASTHMA
     Dosage: AS NEEDED
  20. SEROQUEL [Suspect]
     Route: 048
     Dates: end: 20111007

REACTIONS (4)
  - ASTIGMATISM [None]
  - OFF LABEL USE [None]
  - HYPERMETROPIA [None]
  - CATARACT SUBCAPSULAR [None]
